FAERS Safety Report 9562537 (Version 1)
Quarter: 2013Q3

REPORT INFORMATION
  Report Type: Spontaneous
  Country: US (occurrence: US)
  Receive Date: 20130927
  Receipt Date: 20130927
  Transmission Date: 20140515
  Serious: Yes (Other)
  Sender: FDA-Public Use
  Company Number: US-DYAX CORP.-2013DX000177

PATIENT
  Age: 33 Year
  Sex: Female
  Weight: 140.74 kg

DRUGS (24)
  1. KALBITOR [Suspect]
     Indication: HEREDITARY ANGIOEDEMA
     Route: 058
     Dates: start: 20130916, end: 20130916
  2. KALBITOR [Suspect]
     Route: 058
     Dates: start: 2012
  3. KALBITOR [Suspect]
     Route: 058
     Dates: start: 201309, end: 201309
  4. DOXEPIN HCL [Concomitant]
     Indication: HEREDITARY ANGIOEDEMA
     Route: 048
     Dates: start: 20120705
  5. DANAZOL [Concomitant]
     Indication: HEREDITARY ANGIOEDEMA
     Route: 048
     Dates: start: 20121011
  6. LYRICA [Concomitant]
     Indication: PRODUCT USED FOR UNKNOWN INDICATION
     Route: 048
  7. LEXAPRO [Concomitant]
     Indication: PRODUCT USED FOR UNKNOWN INDICATION
     Route: 048
  8. VITAMIN D [Concomitant]
     Indication: PRODUCT USED FOR UNKNOWN INDICATION
     Route: 048
  9. LEVOTHYROXINE [Concomitant]
     Indication: PRODUCT USED FOR UNKNOWN INDICATION
     Route: 048
  10. URECHOLINE [Concomitant]
     Indication: PRODUCT USED FOR UNKNOWN INDICATION
     Route: 048
  11. TIZANIDINE [Concomitant]
     Indication: MIGRAINE
     Route: 048
     Dates: start: 20120717
  12. SOMA [Concomitant]
     Indication: PRODUCT USED FOR UNKNOWN INDICATION
     Route: 048
  13. CIMETIDINE [Concomitant]
     Indication: HEREDITARY ANGIOEDEMA
     Route: 048
     Dates: start: 20130614
  14. SIMVASTATIN [Concomitant]
     Indication: PRODUCT USED FOR UNKNOWN INDICATION
     Route: 048
  15. BENADRYL [Concomitant]
     Indication: HYPERSENSITIVITY
  16. BENADRYL [Concomitant]
     Indication: HEREDITARY ANGIOEDEMA
  17. PRO-AIR [Concomitant]
     Indication: ASTHMA
     Dates: start: 20120508
  18. EPIPEN [Concomitant]
     Indication: HEREDITARY ANGIOEDEMA
     Dates: start: 20120508
  19. EPIPEN [Concomitant]
     Indication: HYPERSENSITIVITY
  20. ZYRTEC [Concomitant]
     Indication: HYPERSENSITIVITY
     Route: 048
     Dates: start: 20120508
  21. ADVAIR [Concomitant]
     Indication: ASTHMA
     Dates: start: 20130614
  22. ADVAIR [Concomitant]
     Dates: start: 20130614
  23. POTASSIUM CITRATE [Concomitant]
     Indication: HEREDITARY ANGIOEDEMA
     Route: 048
  24. MECLIZINE [Concomitant]
     Indication: MENIERE^S DISEASE
     Route: 048
     Dates: start: 201308

REACTIONS (3)
  - Loss of consciousness [Recovered/Resolved]
  - Asthma [Recovering/Resolving]
  - Drug administration error [Recovered/Resolved]
